FAERS Safety Report 12237761 (Version 4)
Quarter: 2016Q2

REPORT INFORMATION
  Report Type: Report from Study
  Country: CN (occurrence: CN)
  Receive Date: 20160405
  Receipt Date: 20160602
  Transmission Date: 20160815
  Serious: Yes (Other)
  Sender: FDA-Public Use
  Company Number: PHHY2016CN042747

PATIENT
  Age: 53 Year
  Sex: Male

DRUGS (88)
  1. BASILIXIMAB [Suspect]
     Active Substance: BASILIXIMAB
     Indication: PROPHYLAXIS AGAINST TRANSPLANT REJECTION
     Dosage: 20 MG, QD
     Route: 065
     Dates: start: 20160217, end: 20160217
  2. METHYLPREDNISOLONE. [Suspect]
     Active Substance: METHYLPREDNISOLONE
     Indication: PROPHYLAXIS AGAINST TRANSPLANT REJECTION
     Dosage: 500 MG, QD
     Route: 065
     Dates: start: 20160217, end: 20160217
  3. METHYLPREDNISOLONE. [Suspect]
     Active Substance: METHYLPREDNISOLONE
     Dosage: 500 MG, QD
     Route: 065
     Dates: start: 20160218, end: 20160218
  4. PREDNISONE. [Suspect]
     Active Substance: PREDNISONE
     Indication: PROPHYLAXIS AGAINST TRANSPLANT REJECTION
     Dosage: 30 MG, QD
     Route: 065
     Dates: start: 20160223, end: 20160301
  5. TACROLIMUS. [Suspect]
     Active Substance: TACROLIMUS
     Dosage: 0.5 MG, QD
     Route: 065
     Dates: start: 20160218, end: 20160218
  6. ADRENALINE HYDROCHLORIDE [Concomitant]
     Indication: PROPHYLAXIS
     Dosage: 2 MG, 1
     Route: 042
     Dates: start: 20160218, end: 20160218
  7. FUROSEMIDE. [Concomitant]
     Active Substance: FUROSEMIDE
     Dosage: 20 MG, 1
     Route: 042
     Dates: start: 20160224
  8. GANCICLOVIR. [Concomitant]
     Active Substance: GANCICLOVIR
     Indication: INFECTION PROPHYLAXIS
     Dosage: 0.5 G, TID
     Route: 048
     Dates: start: 20160302, end: 20160302
  9. HEPARIN SODIUM. [Concomitant]
     Active Substance: HEPARIN SODIUM
     Dosage: 37500 U, ONCE/SINGLE
     Route: 061
     Dates: start: 20160229, end: 20160229
  10. LACTULOSE. [Concomitant]
     Active Substance: LACTULOSE
     Indication: CONSTIPATION
     Dosage: 15 ML, FREQUENCY: 2
     Route: 048
     Dates: start: 20160219, end: 20160219
  11. MANNITOL. [Concomitant]
     Active Substance: MANNITOL
     Indication: POLYURIA
     Dosage: 250 ML, ONCE/SINGLE
     Route: 042
     Dates: start: 20160218, end: 20160218
  12. PANTOPRAZOLE SODIUM. [Concomitant]
     Active Substance: PANTOPRAZOLE SODIUM
     Indication: PROPHYLAXIS
     Dosage: 40 MG, 1
     Route: 042
     Dates: start: 20160218, end: 20160218
  13. GLUTATHIONE SODIUM [Concomitant]
     Active Substance: GLUTATHIONE
     Indication: PROPHYLAXIS
     Dosage: 1200 MG, 1
     Route: 042
     Dates: start: 20160218, end: 20160218
  14. GLUTATHIONE SODIUM [Concomitant]
     Active Substance: GLUTATHIONE
     Dosage: 1200 MG, 1
     Route: 042
     Dates: start: 20160223, end: 20160224
  15. SODIUM BICARBONATE. [Concomitant]
     Active Substance: SODIUM BICARBONATE
     Indication: ANTACID THERAPY
     Dosage: 250 ML, ONCE/SINGLE
     Route: 042
     Dates: start: 20160218, end: 20160218
  16. TORASEMIDE [Concomitant]
     Active Substance: TORSEMIDE
     Indication: POLYURIA
     Dosage: 10 MG, QD
     Route: 048
     Dates: start: 20160228
  17. TORASEMIDE [Concomitant]
     Active Substance: TORSEMIDE
     Indication: POLYURIA
     Dosage: 10 MG, FREQUENCY: 2
     Route: 042
     Dates: start: 20160219, end: 20160219
  18. MYFORTIC [Suspect]
     Active Substance: MYCOPHENOLATE SODIUM
     Dosage: 1080 MG, QD
     Route: 065
     Dates: start: 20160222, end: 20160223
  19. METHYLPREDNISOLONE. [Suspect]
     Active Substance: METHYLPREDNISOLONE
     Dosage: 160 MG, QD
     Route: 065
     Dates: start: 20160224, end: 20160224
  20. TACROLIMUS. [Suspect]
     Active Substance: TACROLIMUS
     Dosage: 11 MG, QD
     Route: 065
     Dates: start: 20160302, end: 20160302
  21. AMIODARONE HYDROCHLORIDE. [Concomitant]
     Active Substance: AMIODARONE HYDROCHLORIDE
     Dosage: 0.6 G, 1
     Route: 042
     Dates: start: 20160220, end: 20160221
  22. CALCIUM CARBONATE. [Concomitant]
     Active Substance: CALCIUM CARBONATE
     Indication: MINERAL SUPPLEMENTATION
     Dosage: 0.5 G, QD
     Route: 048
     Dates: start: 20160302, end: 20160302
  23. CEFOXITIN SODIUM [Concomitant]
     Active Substance: CEFOXITIN SODIUM
     Indication: ANTIBIOTIC PROPHYLAXIS
     Dosage: 2 G, 1
     Route: 065
     Dates: start: 20160217, end: 20160217
  24. SODIUM BICARBONATE. [Concomitant]
     Active Substance: SODIUM BICARBONATE
     Indication: ANTACID THERAPY
     Dosage: 0.5 G, ONCE/SINGLE
     Route: 048
     Dates: start: 20160302, end: 20160302
  25. SUCCINYLATED GELATIN [Concomitant]
     Active Substance: SUCCINYLATED GELATIN
     Indication: ANAESTHESIA
     Dosage: 1500 ML, 1
     Route: 042
     Dates: start: 20160218, end: 20160218
  26. METHYLPREDNISOLONE. [Suspect]
     Active Substance: METHYLPREDNISOLONE
     Dosage: 240 MG, QD
     Route: 065
     Dates: start: 20160219, end: 20160219
  27. BACILLUS LICHENFORMIS [Concomitant]
     Dosage: 0.5 G, FREQUENCY: 3
     Route: 048
     Dates: start: 20160222, end: 20160224
  28. FLUMAZENIL. [Concomitant]
     Active Substance: FLUMAZENIL
     Indication: ANAESTHESIA
     Dosage: 0.5 MG, ONCE/SINGLE
     Route: 042
     Dates: start: 20160218, end: 20160218
  29. HEPARIN SODIUM. [Concomitant]
     Active Substance: HEPARIN SODIUM
     Indication: DEVICE ISSUE
     Dosage: 25000 U, ONCE/SINGLE
     Route: 042
     Dates: start: 20160218, end: 20160218
  30. ISOSORBIDE MONONITRATE. [Concomitant]
     Active Substance: ISOSORBIDE MONONITRATE
     Indication: CARDIAC DISORDER
     Dosage: 50 MG, 1
     Route: 042
     Dates: start: 20160219, end: 20160219
  31. MAGNESIUM ISOGLYCYRRHIZINATE [Concomitant]
     Active Substance: MAGNESIUM ISOGLYCYRRHIZINATE
     Indication: HEPATIC FUNCTION ABNORMAL
     Dosage: 100 MG, 1
     Route: 042
     Dates: start: 20160225
  32. NEOSTIGMINE METHYLSULFATE. [Concomitant]
     Active Substance: NEOSTIGMINE METHYLSULFATE
     Indication: ANAESTHESIA
     Dosage: 2 MG, ONCE/SINGLE
     Route: 042
     Dates: start: 20160218, end: 20160218
  33. ROCURONIUM BROMIDE. [Concomitant]
     Active Substance: ROCURONIUM BROMIDE
     Indication: ANAESTHESIA
     Dosage: 100 MG, ONCE/SINGLE
     Route: 042
     Dates: start: 20160218, end: 20160218
  34. SMECTITE [Concomitant]
     Active Substance: MONTMORILLONITE
     Indication: DIARRHOEA
     Dosage: 6 G, ONCE/SINGLE
     Route: 048
     Dates: start: 20160221, end: 20160221
  35. SUCCINYLATED GELATIN [Concomitant]
     Active Substance: SUCCINYLATED GELATIN
     Dosage: 500 ML, 1
     Route: 042
     Dates: start: 20160218, end: 20160218
  36. SODIUM LACTATE. [Concomitant]
     Active Substance: SODIUM LACTATE
     Indication: FLUID REPLACEMENT
     Dosage: 1000 ML, ONCE/SINGLE
     Route: 042
     Dates: start: 20160218, end: 20160218
  37. MYFORTIC [Suspect]
     Active Substance: MYCOPHENOLATE SODIUM
     Dosage: 1440 MG, QD
     Route: 065
     Dates: start: 20160219, end: 20160219
  38. TACROLIMUS. [Suspect]
     Active Substance: TACROLIMUS
     Dosage: 6 MG, QD
     Route: 065
     Dates: start: 20160220, end: 20160222
  39. CEFOPERAZONE SODIUM AND SULBACTAM SODIUM [Concomitant]
     Active Substance: CEFOPERAZONE SODIUM\SULBACTAM SODIUM
     Dosage: 3 G, 1
     Route: 042
     Dates: start: 20160218, end: 20160219
  40. CISATRACURIUM BESILATE [Concomitant]
     Active Substance: CISATRACURIUM BESYLATE
     Indication: ANAESTHESIA
     Dosage: 5 MG, 1
     Route: 042
     Dates: start: 20160218, end: 20160218
  41. DESLANOSIDE [Concomitant]
     Active Substance: DESLANOSIDE
     Indication: ATRIAL FIBRILLATION
     Dosage: 0.2 MG, ONCE/SINGLE
     Route: 042
     Dates: start: 20160219, end: 20160219
  42. NORADRENALIN//NOREPINEPHRINE BITARTRATE [Concomitant]
     Indication: HYPERTENSION
     Dosage: 4 MG, 1
     Route: 042
     Dates: start: 20160218, end: 20160218
  43. SUFENTANIL CITRATE. [Concomitant]
     Active Substance: SUFENTANIL CITRATE
     Indication: ANAESTHESIA
     Dosage: 100 UG, 1
     Route: 042
     Dates: start: 20160218, end: 20160218
  44. MYFORTIC [Suspect]
     Active Substance: MYCOPHENOLATE SODIUM
     Dosage: 2160 MG, QD
     Route: 065
     Dates: start: 20160218, end: 20160218
  45. MYFORTIC [Suspect]
     Active Substance: MYCOPHENOLATE SODIUM
     Dosage: 1080 MG, QD
     Route: 065
     Dates: start: 20160221, end: 20160221
  46. MYFORTIC [Suspect]
     Active Substance: MYCOPHENOLATE SODIUM
     Dosage: 1080 MG, QD
     Route: 065
     Dates: start: 20160225, end: 20160227
  47. METHYLPREDNISOLONE. [Suspect]
     Active Substance: METHYLPREDNISOLONE
     Dosage: 160 MG, QD
     Route: 065
     Dates: start: 20160220, end: 20160220
  48. METHYLPREDNISOLONE. [Suspect]
     Active Substance: METHYLPREDNISOLONE
     Dosage: 80 MG, QD
     Route: 065
     Dates: start: 20160221, end: 20160221
  49. TACROLIMUS. [Suspect]
     Active Substance: TACROLIMUS
     Dosage: 10 MG, QD
     Route: 065
     Dates: start: 20160218, end: 20160218
  50. TACROLIMUS. [Suspect]
     Active Substance: TACROLIMUS
     Dosage: 5 MG, QD
     Route: 065
     Dates: start: 20160225, end: 20160227
  51. NIFEDIPINE. [Concomitant]
     Active Substance: NIFEDIPINE
     Indication: BLOOD PRESSURE INCREASED
     Dosage: 30 MG, QD
     Route: 048
     Dates: start: 20160222
  52. PANTOPRAZOLE SODIUM. [Concomitant]
     Active Substance: PANTOPRAZOLE SODIUM
     Dosage: 40 MG, 1
     Route: 042
     Dates: start: 20160224, end: 20160225
  53. GLUTATHIONE [Concomitant]
     Active Substance: GLUTATHIONE
     Indication: PROPHYLAXIS
     Dosage: 1200 MG, 1
     Route: 042
     Dates: start: 20160218, end: 20160219
  54. SODIUM LACTATE. [Concomitant]
     Active Substance: SODIUM LACTATE
     Dosage: 5000 ML, ONCE/SINGLE
     Route: 042
     Dates: start: 20160218, end: 20160218
  55. TACROLIMUS. [Suspect]
     Active Substance: TACROLIMUS
     Dosage: 0.5 MG, QD
     Route: 065
     Dates: start: 20160217, end: 20160217
  56. TACROLIMUS. [Suspect]
     Active Substance: TACROLIMUS
     Dosage: 7 MG, QD
     Route: 065
     Dates: start: 20160219, end: 20160219
  57. TACROLIMUS. [Suspect]
     Active Substance: TACROLIMUS
     Dosage: 5 MG, QD
     Route: 065
     Dates: start: 20160229, end: 20160229
  58. TACROLIMUS. [Suspect]
     Active Substance: TACROLIMUS
     Dosage: 5 MG, QD
     Route: 065
     Dates: start: 20160301, end: 20160301
  59. AMIODARONE HYDROCHLORIDE. [Concomitant]
     Active Substance: AMIODARONE HYDROCHLORIDE
     Indication: ATRIAL FIBRILLATION
     Dosage: 0.6 G, 2
     Route: 042
     Dates: start: 20160219, end: 20160219
  60. CEFOPERAZONE SODIUM AND SULBACTAM SODIUM [Concomitant]
     Active Substance: CEFOPERAZONE SODIUM\SULBACTAM SODIUM
     Indication: ANTI-INFECTIVE THERAPY
     Dosage: 3 G, 1
     Route: 042
     Dates: start: 20160218, end: 20160218
  61. DIPHENHYDRAMINE HYDROCHLORIDE. [Concomitant]
     Active Substance: DIPHENHYDRAMINE HYDROCHLORIDE
     Indication: VOMITING
     Dosage: 20 MG, 1
     Route: 030
     Dates: start: 20160221, end: 20160221
  62. FUROSEMIDE. [Concomitant]
     Active Substance: FUROSEMIDE
     Indication: POLYURIA
     Dosage: 20 MG, 1
     Route: 042
     Dates: start: 20160222, end: 20160222
  63. PANTOPRAZOLE SODIUM. [Concomitant]
     Active Substance: PANTOPRAZOLE SODIUM
     Dosage: 40 MG, 1
     Route: 042
     Dates: start: 20160218, end: 20160219
  64. PANTOPRAZOLE SODIUM. [Concomitant]
     Active Substance: PANTOPRAZOLE SODIUM
     Dosage: 40 MG, BID
     Route: 042
     Dates: start: 20160225
  65. GLUTATHIONE [Concomitant]
     Active Substance: GLUTATHIONE
     Dosage: 1200 MG, 1
     Route: 042
     Dates: start: 20160221, end: 20160221
  66. REMIFENTANIL HYDROCHLORIDE [Concomitant]
     Active Substance: REMIFENTANIL HYDROCHLORIDE
     Indication: ANAESTHESIA
     Dosage: 4 MG, 1
     Route: 042
     Dates: start: 20160218, end: 20160218
  67. TRAMADOL HYDROCHLORIDE. [Concomitant]
     Active Substance: TRAMADOL HYDROCHLORIDE
     Indication: ANAESTHESIA
     Dosage: 0.1 G, 1
     Route: 042
     Dates: start: 20160218, end: 20160218
  68. SULFADIAZINE W/SULFAMETHOXAZOLE/TRIMETHOPRIM [Concomitant]
     Indication: INFECTION PROPHYLAXIS
     Dosage: 0.96 G, BID
     Route: 048
     Dates: start: 20160302, end: 20160302
  69. MYFORTIC [Suspect]
     Active Substance: MYCOPHENOLATE SODIUM
     Indication: PROPHYLAXIS AGAINST TRANSPLANT REJECTION
     Dosage: 1440 MG, QD
     Route: 065
     Dates: start: 20160217, end: 20160217
  70. MYFORTIC [Suspect]
     Active Substance: MYCOPHENOLATE SODIUM
     Dosage: 1080 MG, QD
     Route: 065
     Dates: start: 20160220, end: 20160220
  71. MYFORTIC [Suspect]
     Active Substance: MYCOPHENOLATE SODIUM
     Dosage: 1080 MG, QD
     Route: 065
     Dates: start: 20160229, end: 20160302
  72. MYFORTIC [Suspect]
     Active Substance: MYCOPHENOLATE SODIUM
     Dosage: 1800 MG, QD
     Route: 065
     Dates: start: 20160302, end: 20160302
  73. PREDNISONE. [Suspect]
     Active Substance: PREDNISONE
     Dosage: 35 MG, QD
     Route: 065
     Dates: start: 20160302, end: 20160302
  74. TACROLIMUS. [Suspect]
     Active Substance: TACROLIMUS
     Indication: PROPHYLAXIS AGAINST TRANSPLANT REJECTION
     Dosage: 3 MG, QD
     Route: 065
     Dates: start: 20160217, end: 20160217
  75. TACROLIMUS. [Suspect]
     Active Substance: TACROLIMUS
     Dosage: 5 MG, QD
     Route: 065
     Dates: start: 20160223, end: 20160224
  76. TACROLIMUS. [Suspect]
     Active Substance: TACROLIMUS
     Dosage: 5 MG, QD
     Route: 065
     Dates: start: 20160228, end: 20160228
  77. PROPOFOL. [Concomitant]
     Active Substance: PROPOFOL
     Indication: ANAESTHESIA
     Dosage: 0.2 G, ONCE/SINGLE
     Route: 042
     Dates: start: 20160218, end: 20160218
  78. CEFDINIR. [Concomitant]
     Active Substance: CEFDINIR
     Indication: DIARRHOEA
     Dosage: 100 MG, TID
     Route: 048
     Dates: start: 20160302, end: 20160302
  79. CEFOPERAZONE SODIUM AND SULBACTAM SODIUM [Concomitant]
     Active Substance: CEFOPERAZONE SODIUM\SULBACTAM SODIUM
     Dosage: 3 G, 1
     Route: 042
     Dates: start: 20160221, end: 20160222
  80. TROPISETRON HYDROCHLORIDE [Concomitant]
     Active Substance: TROPISETRON HYDROCHLORIDE
     Indication: ANAESTHESIA
     Dosage: 15 MG, 1
     Route: 042
     Dates: start: 20160218, end: 20160218
  81. SODIUM LACTATE. [Concomitant]
     Active Substance: SODIUM LACTATE
     Dosage: 500 ML, ONCE/SINGLE
     Route: 042
     Dates: start: 20160218, end: 20160219
  82. ATROPINE. [Concomitant]
     Active Substance: ATROPINE
     Indication: PROPHYLAXIS
     Dosage: 1 MG, 1
     Route: 042
     Dates: start: 20160218, end: 20160218
  83. BACILLUS LICHENFORMIS [Concomitant]
     Indication: DIARRHOEA
     Dosage: 0.5 G, FREQUENCY: 2
     Route: 048
     Dates: start: 20160221, end: 20160221
  84. CEFOPERAZONE SODIUM AND SULBACTAM SODIUM [Concomitant]
     Active Substance: CEFOPERAZONE SODIUM\SULBACTAM SODIUM
     Dosage: 1.5 G, BID
     Route: 042
     Dates: start: 20160225, end: 20160229
  85. CEFOPERAZONE SODIUM AND SULBACTAM SODIUM [Concomitant]
     Active Substance: CEFOPERAZONE SODIUM\SULBACTAM SODIUM
     Dosage: 1.5 G, BID
     Route: 042
     Dates: start: 20160229
  86. GENTAMICIN SULFATE. [Concomitant]
     Active Substance: GENTAMICIN SULFATE
     Indication: ANTI-INFECTIVE THERAPY
     Dosage: 160000 IU, ONCE/SINGLE
     Route: 042
     Dates: start: 20160218, end: 20160218
  87. GLYCERIN. [Concomitant]
     Active Substance: GLYCERIN
     Indication: CONSTIPATION
     Dosage: 110 ML, ONCE/SINGLE
     Route: 054
     Dates: start: 20160217, end: 20160217
  88. MIDAZOLAM [Concomitant]
     Active Substance: MIDAZOLAM\MIDAZOLAM HYDROCHLORIDE
     Indication: ANAESTHESIA
     Dosage: 5 MG, 1
     Route: 042
     Dates: start: 20160218, end: 20160218

REACTIONS (10)
  - Lymphocyte count decreased [Unknown]
  - Neutrophil count increased [Unknown]
  - Chest pain [Unknown]
  - Haemoglobin decreased [Unknown]
  - Blood glucose increased [Unknown]
  - Brain natriuretic peptide increased [Unknown]
  - Chest discomfort [Recovering/Resolving]
  - Supraventricular extrasystoles [Recovering/Resolving]
  - Tachycardia [Unknown]
  - Blood albumin decreased [Unknown]

NARRATIVE: CASE EVENT DATE: 20160219
